FAERS Safety Report 8553052-1 (Version None)
Quarter: 2012Q2

REPORT INFORMATION
  Report Type: 
  Country: None (occurrence: None)
  Receive Date: 20120416
  Receipt Date: 20091020
  Transmission Date: 20120825
  Serious: Yes (Hospitalization, Other)
  Sender: FDA-Public Use
  Company Number: PHEH2009US14223

PATIENT
  Sex: Male

DRUGS (2)
  1. DIOVAN [Suspect]
  2. TEKTURNA [Suspect]

REACTIONS (2)
  - BLOOD POTASSIUM INCREASED [None]
  - BLOOD CREATININE INCREASED [None]
